FAERS Safety Report 7999287-8 (Version None)
Quarter: 2011Q4

REPORT INFORMATION
  Report Type: 
  Country: None (occurrence: None)
  Receive Date: 20111221
  Receipt Date: 20111219
  Transmission Date: 20120403
  Serious: Yes (Hospitalization, Other)
  Sender: FDA-Public Use
  Company Number: GXKR2011DE003626

PATIENT
  Age: 34 Year
  Sex: Female

DRUGS (7)
  1. TOPIRAMATE [Suspect]
     Indication: EPILEPSY
     Dosage: 100-0-150 MG/DAY
     Route: 048
     Dates: start: 20100822, end: 20110610
  2. PROTHYRID [Concomitant]
     Indication: HYPOTHYROIDISM
     Dosage: 0
     Route: 048
     Dates: start: 20100822, end: 20110610
  3. MULTIBIONTA FORTE [Concomitant]
     Indication: PROPHYLAXIS OF NEURAL TUBE DEFECT
     Dosage: 0.5 MG, QD
     Route: 048
     Dates: start: 20100822
  4. JODID [Concomitant]
     Indication: HYPOTHYROIDISM
     Dosage: 150 UG, QD
  5. LOCABIOSOL [Concomitant]
     Indication: COUGH
     Dosage: 2 DF, TID
  6. FLU-IMUNE [Concomitant]
     Indication: IMMUNISATION
     Dosage: UNK MG, UNK
     Route: 030
     Dates: start: 20110106, end: 20110106
  7. LEVOTHYROXINE SODIUM [Concomitant]
     Indication: HYPOTHYROIDISM
     Dosage: 88 UG/D (0-18 GW), 100 UG/DAY (18-26 GW) AND 112 UG/D (26-41.5 GW)
     Route: 048
     Dates: start: 20100822, end: 20110610

REACTIONS (6)
  - CHEST PAIN [None]
  - COUGH [None]
  - NASOPHARYNGITIS [None]
  - MATERNAL EXPOSURE DURING PREGNANCY [None]
  - OROPHARYNGEAL PAIN [None]
  - IMMINENT ABORTION [None]
